FAERS Safety Report 19056716 (Version 2)
Quarter: 2021Q1

REPORT INFORMATION
  Report Type: Spontaneous
  Country: US (occurrence: US)
  Receive Date: 20210324
  Receipt Date: 20210325
  Transmission Date: 20210420
  Serious: No
  Sender: FDA-Public Use
  Company Number: US-TEVA-2021-US-1891895

PATIENT

DRUGS (3)
  1. ADIPEX?P [Suspect]
     Active Substance: PHENTERMINE HYDROCHLORIDE
     Route: 065
     Dates: start: 2019
  2. ADIPEX?P [Suspect]
     Active Substance: PHENTERMINE HYDROCHLORIDE
     Indication: WEIGHT DECREASED
     Dosage: TAKING THIS MEDICATION OVER 11 YEARS
     Route: 065
     Dates: start: 2010
  3. ADIPEX?P [Suspect]
     Active Substance: PHENTERMINE HYDROCHLORIDE
     Route: 065
     Dates: start: 20210301

REACTIONS (2)
  - Therapeutic product effect incomplete [Unknown]
  - Asthenia [Unknown]

NARRATIVE: CASE EVENT DATE: 202103
